FAERS Safety Report 16610158 (Version 1)
Quarter: 2019Q3

REPORT INFORMATION
  Report Type: Spontaneous
  Country: US (occurrence: US)
  Receive Date: 20190721
  Receipt Date: 20190721
  Transmission Date: 20191004
  Serious: Yes (Other)
  Sender: FDA-Public Use
  Company Number: None

PATIENT
  Age: 72 Year
  Sex: Female
  Weight: 67.5 kg

DRUGS (3)
  1. ESTRADIOL. [Concomitant]
     Active Substance: ESTRADIOL
  2. DOXAZOSIN [Suspect]
     Active Substance: DOXAZOSIN MESYLATE
     Indication: HYPERTENSION
     Dosage: ?          QUANTITY:2 TABLET(S);?
     Route: 048
     Dates: start: 20120701
  3. ATENOL/CHLOR [Concomitant]
     Active Substance: ATENOLOL\CHLORTHALIDONE

REACTIONS (2)
  - Hypertension [None]
  - Drug ineffective [None]

NARRATIVE: CASE EVENT DATE: 20190630
